FAERS Safety Report 24122004 (Version 1)
Quarter: 2024Q3

REPORT INFORMATION
  Report Type: Report from Study
  Country: CN (occurrence: CN)
  Receive Date: 20240722
  Receipt Date: 20240722
  Transmission Date: 20241017
  Serious: Yes (Other)
  Sender: ROCHE
  Company Number: CN-ROCHE-3573987

PATIENT
  Age: 71 Year
  Sex: Female

DRUGS (7)
  1. POLATUZUMAB VEDOTIN [Suspect]
     Active Substance: POLATUZUMAB VEDOTIN
     Indication: Diffuse large B-cell lymphoma
     Route: 065
     Dates: start: 20240117
  2. RITUXIMAB [Suspect]
     Active Substance: RITUXIMAB
     Indication: Diffuse large B-cell lymphoma
     Route: 065
     Dates: start: 20240117
  3. ALECTINIB [Suspect]
     Active Substance: ALECTINIB
     Indication: Diffuse large B-cell lymphoma
     Route: 042
     Dates: start: 20240117
  4. VENCLEXTA [Suspect]
     Active Substance: VENETOCLAX
     Indication: Diffuse large B-cell lymphoma
     Route: 065
     Dates: start: 20240117
  5. RECOMBINANT HUMAN GRANULOCYTE COLONY STIMULATING FACTOR INJECTION (RHG [Concomitant]
     Dates: start: 20240119
  6. POLYETHYLENE GLYCOL RECOMBINANT HUMAN GRANULOCYTE STIMULATING FACTOR ( [Concomitant]
     Dates: start: 20240223
  7. LEUCOGEN [Concomitant]
     Active Substance: LEUCOGEN
     Route: 048
     Dates: start: 20240226

REACTIONS (5)
  - Pyrexia [Recovered/Resolved]
  - White blood cell count decreased [Recovered/Resolved]
  - Neutrophil count decreased [Recovered/Resolved]
  - Lymphocyte count decreased [Not Recovered/Not Resolved]
  - Hypocalcaemia [Recovered/Resolved]

NARRATIVE: CASE EVENT DATE: 20240117
